FAERS Safety Report 5588667-6 (Version None)
Quarter: 2008Q1

REPORT INFORMATION
  Report Type: 
  Country: None (occurrence: None)
  Receive Date: 20080111
  Receipt Date: 20080102
  Transmission Date: 20080703
  Serious: Yes (Life-Threatening, Hospitalization, Other)
  Sender: FDA-Public Use
  Company Number: IE-PFIZER INC-2007102438

PATIENT
  Sex: Female
  Weight: 61.2 kg

DRUGS (3)
  1. CHANTIX [Suspect]
     Route: 048
     Dates: start: 20071116, end: 20071123
  2. VENLAFAXINE HYDROCHLORIDE [Concomitant]
  3. EFFEXOR XR [Concomitant]
     Indication: DEPRESSION
     Route: 048

REACTIONS (3)
  - DIZZINESS [None]
  - DYSSTASIA [None]
  - SYNCOPE [None]
